FAERS Safety Report 10185053 (Version 1)
Quarter: 2014Q2

REPORT INFORMATION
  Report Type: Spontaneous
  Country: FR (occurrence: FR)
  Receive Date: 20140521
  Receipt Date: 20140521
  Transmission Date: 20141212
  Serious: Yes (Other)
  Sender: FDA-Public Use
  Company Number: FR-ASTRAZENECA-2014SE34274

PATIENT
  Age: 749 Month
  Sex: Male

DRUGS (8)
  1. ENTOCORT [Suspect]
     Route: 048
  2. SIMVASTATINE [Suspect]
     Indication: HYPERCHOLESTEROLAEMIA
     Route: 048
  3. CIFLOX [Suspect]
     Indication: INFECTION
     Route: 065
  4. MOPRAL [Concomitant]
  5. KARDEGIC [Concomitant]
  6. GLUCOPHAGE [Concomitant]
  7. ATENOLOL [Concomitant]
  8. VERAPAMIL [Concomitant]

REACTIONS (2)
  - Tendon rupture [Recovered/Resolved]
  - Tendon disorder [Not Recovered/Not Resolved]
